FAERS Safety Report 16531899 (Version 2)
Quarter: 2019Q3

REPORT INFORMATION
  Report Type: Report from Study
  Country: CO (occurrence: CO)
  Receive Date: 20190705
  Receipt Date: 20190724
  Transmission Date: 20191004
  Serious: Yes (Hospitalization)
  Sender: FDA-Public Use
  Company Number: CO-ASTELLAS-2019US022631

PATIENT
  Age: 63 Year
  Sex: Female

DRUGS (13)
  1. TACROLIMUS. [Suspect]
     Active Substance: TACROLIMUS
     Indication: RENAL TRANSPLANT
     Dosage: 4 MG, ONCE DAILY (4 CAPSULES OF 1 MG)
     Route: 048
     Dates: start: 20110220
  2. OMEPRAZOLE. [Concomitant]
     Active Substance: OMEPRAZOLE
     Indication: GASTRIC DISORDER
     Route: 048
     Dates: start: 20110220
  3. MYCOPHENOLATE [Concomitant]
     Active Substance: MYCOPHENOLIC ACID
     Indication: RENAL TRANSPLANT
     Route: 048
     Dates: start: 20110220
  4. CALCITRIOL. [Concomitant]
     Active Substance: CALCITRIOL
     Indication: PRODUCT USED FOR UNKNOWN INDICATION
     Dosage: 0.25 MG, ONCE DAILY
     Route: 048
     Dates: start: 20110220
  5. PREDNISOLONE. [Concomitant]
     Active Substance: PREDNISOLONE
     Indication: PRODUCT USED FOR UNKNOWN INDICATION
     Route: 048
     Dates: start: 20110220
  6. METFORMIN [Concomitant]
     Active Substance: METFORMIN HYDROCHLORIDE
     Indication: DIABETES MELLITUS
     Dosage: 850 MG, TWICE DAILY (1 BEFORE LUNCH AND 1 BEFORE DINNER)
     Route: 048
     Dates: start: 20110220
  7. HYDROCHLOROTHIAZIDE. [Concomitant]
     Active Substance: HYDROCHLOROTHIAZIDE
     Indication: DIURETIC THERAPY
     Route: 048
     Dates: start: 20110220
  8. LOSARTAN. [Concomitant]
     Active Substance: LOSARTAN
     Indication: BLOOD PRESSURE ABNORMAL
     Route: 048
     Dates: start: 20110220
  9. ACETYLSALICYLIC ACID [Concomitant]
     Active Substance: ASPIRIN
     Indication: PRODUCT USED FOR UNKNOWN INDICATION
     Route: 048
     Dates: start: 20110220
  10. INSULIN GLARGINE [Concomitant]
     Active Substance: INSULIN GLARGINE
     Indication: DIABETES MELLITUS
     Dosage: 30 IU, TWICE DAILY (30 UNITS IN THE MORNING AND 30 UNITS IN THE NIGHT)
     Route: 058
     Dates: start: 20110220
  11. ATORVASTATIN [Concomitant]
     Active Substance: ATORVASTATIN
     Indication: BLOOD TRIGLYCERIDES ABNORMAL
     Route: 048
     Dates: start: 20110220
  12. LYRICA [Concomitant]
     Active Substance: PREGABALIN
     Indication: DIABETIC RETINOPATHY
     Route: 048
  13. ACETAMINOPHEN. [Concomitant]
     Active Substance: ACETAMINOPHEN
     Indication: PRODUCT USED FOR UNKNOWN INDICATION
     Route: 048

REACTIONS (5)
  - Urinary tract infection [Recovered/Resolved]
  - Vomiting [Recovered/Resolved]
  - Bladder prolapse [Recovering/Resolving]
  - Chills [Recovered/Resolved]
  - Pyrexia [Recovered/Resolved]

NARRATIVE: CASE EVENT DATE: 20190514
